FAERS Safety Report 5264225-8 (Version None)
Quarter: 2007Q1

REPORT INFORMATION
  Report Type: 
  Country: None (occurrence: None)
  Receive Date: 20070313
  Receipt Date: 20070301
  Transmission Date: 20070707
  Serious: Yes (Other)
  Sender: FDA-Public Use
  Company Number: US-PFIZER INC-2007016963

PATIENT
  Sex: Male
  Weight: 86.2 kg

DRUGS (1)
  1. LIPITOR [Suspect]
     Indication: BLOOD CHOLESTEROL INCREASED
     Dates: start: 20060301, end: 20061201

REACTIONS (3)
  - AMNESIA [None]
  - MYOCARDIAL INFARCTION [None]
  - SLEEP DISORDER [None]
